FAERS Safety Report 4531849-2 (Version None)
Quarter: 2004Q4

REPORT INFORMATION
  Report Type: 
  Country: None (occurrence: None)
  Receive Date: 20041220
  Receipt Date: 20040913
  Transmission Date: 20050328
  Serious: Yes (Other)
  Sender: FDA-Public Use
  Company Number: CA-BRISTOL-MYERS SQUIBB COMPANY-12702312

PATIENT
  Age: 71 Year
  Sex: Male

DRUGS (14)
  1. ABATACEPT [Suspect]
     Indication: RHEUMATOID ARTHRITIS
     Route: 042
     Dates: start: 20040608
  2. METHOTREXATE [Suspect]
     Indication: RHEUMATOID ARTHRITIS
     Route: 058
     Dates: start: 20030515
  3. ALTACE [Concomitant]
     Route: 048
     Dates: start: 20040408
  4. CALCIUM [Concomitant]
     Dates: start: 19980101
  5. ASPIRIN [Concomitant]
     Dates: start: 19950101
  6. FOLIC ACID [Concomitant]
     Dates: start: 19950101
  7. MISOPROSTOL [Concomitant]
     Route: 048
     Dates: start: 20000101
  8. MOBICOX [Concomitant]
     Route: 048
     Dates: start: 20030821
  9. PREDNISONE TAB [Concomitant]
     Dates: start: 19950101
  10. PROSCAR [Concomitant]
     Route: 048
     Dates: start: 20040415
  11. TAMSULOSIN [Concomitant]
     Dates: start: 20030301
  12. TOBRADEX [Concomitant]
     Dates: start: 20030301
  13. VITAMIN C [Concomitant]
     Dates: start: 19950101
  14. VITAMIN E [Concomitant]
     Dates: start: 19950101

REACTIONS (3)
  - BASAL CELL CARCINOMA [None]
  - HYPERKERATOSIS [None]
  - MALIGNANT MELANOMA IN SITU [None]
